FAERS Safety Report 26000391 (Version 2)
Quarter: 2025Q4

REPORT INFORMATION
  Report Type: Report from Study
  Country: US (occurrence: US)
  Receive Date: 20251105
  Receipt Date: 20251111
  Transmission Date: 20260117
  Serious: Yes (Other)
  Sender: ABBVIE
  Company Number: US-ABBVIE-6531115

PATIENT
  Age: 52 Year
  Sex: Male
  Weight: 109.76 kg

DRUGS (3)
  1. UBRELVY [Suspect]
     Active Substance: UBROGEPANT
     Indication: Migraine
     Dosage: FORM STRENGTH: 100 MG
     Route: 048
     Dates: start: 20220916
  2. UBRELVY [Suspect]
     Active Substance: UBROGEPANT
     Indication: Migraine
     Dosage: LAST ADMIN DATE: 2022,
     Route: 048
     Dates: start: 20220301
  3. EMGALITY [Concomitant]
     Active Substance: GALCANEZUMAB-GNLM
     Indication: Migraine

REACTIONS (4)
  - Shoulder operation [Unknown]
  - Tenoplasty [Unknown]
  - Hernia [Unknown]
  - Muscle operation [Unknown]

NARRATIVE: CASE EVENT DATE: 20220301
